FAERS Safety Report 6272103-0 (Version None)
Quarter: 2009Q3

REPORT INFORMATION
  Report Type: 
  Country: None (occurrence: None)
  Receive Date: 20090717
  Receipt Date: 20090710
  Transmission Date: 20100115
  Serious: Yes (Life-Threatening, Hospitalization)
  Sender: FDA-Public Use
  Company Number: B0583181A

PATIENT
  Age: 75 Year
  Sex: Female

DRUGS (2)
  1. AUGMENTIN '125' [Suspect]
     Indication: PROPHYLAXIS
     Route: 042
     Dates: start: 20090428, end: 20090428
  2. UNSPECIFIED ANESTHETIC [Concomitant]
     Route: 065
     Dates: start: 20090428, end: 20090428

REACTIONS (8)
  - ANAPHYLACTIC SHOCK [None]
  - ANGIOEDEMA [None]
  - BRONCHOSPASM [None]
  - DYSPHONIA [None]
  - INFLAMMATION [None]
  - LUNG DISORDER [None]
  - PNEUMOMEDIASTINUM [None]
  - SUBCUTANEOUS EMPHYSEMA [None]
